FAERS Safety Report 4480841-5 (Version None)
Quarter: 2004Q4

REPORT INFORMATION
  Report Type: 
  Country: None (occurrence: None)
  Receive Date: 20041021
  Receipt Date: 20041011
  Transmission Date: 20050328
  Serious: Yes (Hospitalization)
  Sender: FDA-Public Use
  Company Number: FR-ABBOTT-04P-056-0276984-00

PATIENT
  Age: 38 Year
  Sex: Male

DRUGS (15)
  1. DEPAKINE CHRONO TABLETS [Suspect]
     Indication: DRUG USE FOR UNKNOWN INDICATION
     Route: 048
     Dates: start: 20040822, end: 20040901
  2. DEPAKINE CHRONO TABLETS [Suspect]
     Route: 048
     Dates: start: 20040817, end: 20040821
  3. PYRIMETHAMINE TAB [Suspect]
     Indication: CEREBRAL TOXOPLASMOSIS
     Route: 048
     Dates: start: 20040818, end: 20040903
  4. PYRIMETHAMINE TAB [Suspect]
     Route: 048
     Dates: start: 20040817, end: 20040817
  5. PYRIMETHAMINE TAB [Suspect]
     Dates: start: 20040101
  6. PAROXETINE HYDROCHLORIDE [Concomitant]
     Indication: DRUG USE FOR UNKNOWN INDICATION
     Route: 048
     Dates: start: 20040715, end: 20040901
  7. CLINDAMYCIN HYDROCHLORIDE [Concomitant]
     Indication: DRUG USE FOR UNKNOWN INDICATION
     Route: 048
     Dates: start: 20040817, end: 20040831
  8. NELFINAVIR MESILATE [Concomitant]
     Indication: ACQUIRED IMMUNODEFICIENCY SYNDROME
     Route: 048
     Dates: start: 20040715, end: 20040903
  9. EMTRIVA [Concomitant]
     Indication: ACQUIRED IMMUNODEFICIENCY SYNDROME
     Dates: start: 20040715, end: 20040903
  10. VIREAD [Concomitant]
     Indication: ACQUIRED IMMUNODEFICIENCY SYNDROME
     Route: 048
     Dates: start: 20040715, end: 20040903
  11. FENOFIBRATE [Concomitant]
     Indication: DRUG USE FOR UNKNOWN INDICATION
     Route: 048
     Dates: start: 20040715
  12. CLONAZEPAM [Concomitant]
     Indication: DRUG USE FOR UNKNOWN INDICATION
     Dates: start: 20040822
  13. CALCIUM FOLINATE [Concomitant]
     Indication: DRUG USE FOR UNKNOWN INDICATION
     Route: 042
     Dates: start: 20040817
  14. CALCIUM FOLINATE [Concomitant]
     Route: 048
  15. PREDNISONE [Concomitant]
     Indication: DRUG USE FOR UNKNOWN INDICATION
     Route: 048
     Dates: start: 20040822

REACTIONS (3)
  - LEUKOPENIA [None]
  - MYELODYSPLASTIC SYNDROME [None]
  - THROMBOCYTOPENIA [None]
